FAERS Safety Report 7551727-4 (Version None)
Quarter: 2011Q2

REPORT INFORMATION
  Report Type: 
  Country: None (occurrence: None)
  Receive Date: 20110616
  Receipt Date: 20110527
  Transmission Date: 20111010
  Serious: Yes (Other)
  Sender: FDA-Public Use
  Company Number: A0865989A

PATIENT
  Age: 69 Year
  Sex: Male
  Weight: 132 kg

DRUGS (20)
  1. METFORMIN HCL [Concomitant]
  2. AVANDIA [Suspect]
     Indication: DIABETES MELLITUS
     Dosage: 4MG PER DAY
     Dates: start: 20040101, end: 20090101
  3. GLARGINE [Concomitant]
  4. ISOSORBIDE MONONITRATE [Concomitant]
  5. LOSARTAN POTASSIUM [Concomitant]
  6. METOPROLOL [Concomitant]
  7. CHLORTHALIDONE [Concomitant]
  8. INSULIN [Concomitant]
  9. IRBESARTAN [Concomitant]
  10. PRANDIN [Concomitant]
  11. CARBOXYMETHYLCELLULOSE [Concomitant]
  12. DILTIAZEM [Concomitant]
  13. PROPOXYPHENE HYDROCHLORIDE [Concomitant]
  14. ACARBOSE [Concomitant]
  15. DOCUSATE [Concomitant]
  16. AMARYL [Concomitant]
  17. CARVEDILOL [Concomitant]
  18. LANTUS [Concomitant]
  19. ZOCOR [Concomitant]
  20. PENTOXIFYLLINE [Concomitant]

REACTIONS (2)
  - MYOCARDIAL INFARCTION [None]
  - CARDIAC FAILURE CONGESTIVE [None]
